FAERS Safety Report 16876099 (Version 8)
Quarter: 2020Q1

REPORT INFORMATION
  Report Type: Report from Study
  Country: US (occurrence: US)
  Receive Date: 20191002
  Receipt Date: 20200305
  Transmission Date: 20200409
  Serious: Yes (Hospitalization)
  Sender: FDA-Public Use
  Company Number: US-SA-2019SA031718

PATIENT
  Age: 44 Year
  Sex: Male
  Weight: 135 kg

DRUGS (35)
  1. TYLENOL [Concomitant]
     Active Substance: ACETAMINOPHEN
     Indication: PROPHYLAXIS
     Dosage: 650 MG, UNK
     Route: 065
     Dates: start: 20190323, end: 20190329
  2. AMBIEN [Concomitant]
     Active Substance: ZOLPIDEM TARTRATE
     Indication: INSOMNIA
     Dosage: 10 MG QHS, PRN
     Route: 048
     Dates: start: 20190402
  3. INSULIN [Concomitant]
     Active Substance: INSULIN NOS
     Indication: DIABETES MELLITUS
     Dosage: 80 (LONG ACTING), UNK
     Route: 058
     Dates: start: 2016
  4. JARDIANCE [Concomitant]
     Active Substance: EMPAGLIFLOZIN
     Indication: DIABETES MELLITUS
     Dosage: 25 MG, UNK
     Route: 048
     Dates: start: 20190409
  5. VALTREX [Concomitant]
     Active Substance: VALACYCLOVIR HYDROCHLORIDE
     Indication: PROPHYLAXIS
     Dosage: 500 MG, QD
     Route: 048
     Dates: start: 20190325
  6. PRILOSEC [Concomitant]
     Active Substance: OMEPRAZOLE MAGNESIUM
     Indication: PROPHYLAXIS
     Dosage: 20 MG, UNK
     Route: 048
     Dates: start: 20190323, end: 20190329
  7. IBUPROFEN. [Concomitant]
     Active Substance: IBUPROFEN
     Indication: PROPHYLAXIS
     Dosage: 400 MG, UNK
     Route: 048
     Dates: start: 20190325, end: 20190329
  8. METHYLPREDNISOLONE. [Concomitant]
     Active Substance: METHYLPREDNISOLONE
     Indication: PROPHYLAXIS
     Dosage: 1 G, UNK
     Route: 048
     Dates: start: 20190325, end: 20190329
  9. NOVOLOG [Concomitant]
     Active Substance: INSULIN ASPART
     Dosage: 40 UNITS,SUB-Q
     Route: 058
     Dates: start: 20190401, end: 20190403
  10. NOVOLOG [Concomitant]
     Active Substance: INSULIN ASPART
     Dosage: 135 UNK
     Route: 058
     Dates: start: 2016
  11. HUMULIN NOS [Concomitant]
     Active Substance: INSULIN HUMAN
     Dosage: 60 UNITS, BID
     Route: 058
     Dates: start: 20190401, end: 20190402
  12. INSULIN [Concomitant]
     Active Substance: INSULIN NOS
     Dosage: 50 (SHORT ACTING)
     Route: 058
     Dates: start: 2016
  13. GLUCOSE [Concomitant]
     Active Substance: DEXTROSE
     Dosage: 15 G, PRN
     Route: 048
     Dates: start: 20190401
  14. AMLODIPINE [Concomitant]
     Active Substance: AMLODIPINE BESYLATE
     Indication: HYPERTENSION
     Dosage: 10 MG, UNK, QAM RF: 0
     Route: 048
     Dates: start: 2016
  15. INSULIN [Concomitant]
     Active Substance: INSULIN NOS
     Dosage: 0.1 (SHORT ACTING)
     Route: 058
     Dates: start: 2016
  16. VALTREX [Concomitant]
     Active Substance: VALACYCLOVIR HYDROCHLORIDE
     Dosage: 500 UNK
     Route: 048
     Dates: start: 20190402, end: 20190403
  17. BENADRYL [Concomitant]
     Active Substance: DIPHENHYDRAMINE HYDROCHLORIDE
     Dosage: 50 MG, UNK
     Route: 042
     Dates: start: 20190325, end: 20190329
  18. LACTATED RINGERS SOLUTION [Concomitant]
     Active Substance: CALCIUM CHLORIDE\POTASSIUM CHLORIDE\SODIUM CHLORIDE\SODIUM LACTATE
     Dosage: 1,000 MIS @ 100 MLS/HR
     Route: 042
     Dates: start: 20190401, end: 20190403
  19. ALEMTUZUMAB [Suspect]
     Active Substance: ALEMTUZUMAB
     Indication: RELAPSING MULTIPLE SCLEROSIS
     Dosage: 12 MG, QD
     Route: 041
     Dates: start: 20190325, end: 20190329
  20. INSULIN [Concomitant]
     Active Substance: INSULIN NOS
     Dosage: 45 (LONG ACTING)
     Route: 058
     Dates: start: 2016
  21. INSULIN [Concomitant]
     Active Substance: INSULIN NOS
     Dosage: 25(SHORT ACTING)
     Route: 058
     Dates: start: 20190409
  22. DEXTROSE. [Concomitant]
     Active Substance: DEXTROSE
     Indication: HYPOGLYCAEMIA
     Dosage: 25 G, PRN
     Route: 042
     Dates: start: 20190401
  23. VITAMIN D2 [Concomitant]
     Active Substance: ERGOCALCIFEROL
     Indication: PROPHYLAXIS
     Dosage: 50000 UNK
     Route: 048
     Dates: start: 20170608
  24. METOPROLOL. [Concomitant]
     Active Substance: METOPROLOL
     Indication: HYPERTENSION
     Dosage: 25 MG
     Route: 048
     Dates: start: 2012
  25. COZAAR [Concomitant]
     Active Substance: LOSARTAN POTASSIUM
     Dosage: 100 MG, QAM
     Route: 048
     Dates: start: 20190402, end: 20190402
  26. LIPITOR [Concomitant]
     Active Substance: ATORVASTATIN CALCIUM
     Dosage: 10 MG, UNK, QAM RF: 0
     Route: 048
     Dates: start: 2012
  27. LOVENOX [Concomitant]
     Active Substance: ENOXAPARIN SODIUM
     Indication: PROPHYLAXIS
     Dosage: 40 MG, UNK
     Route: 058
     Dates: start: 20190402, end: 20190403
  28. MAALOX PLUS [ALUMINIUM HYDROXIDE GEL, DRIED;DIMETICONE;MAGNESIUM HYDRO [Concomitant]
     Indication: DYSPEPSIA
     Dosage: 30 ML, Q4H, PRN
     Route: 048
     Dates: start: 20190401
  29. NORVASC [Concomitant]
     Active Substance: AMLODIPINE BESYLATE
     Dosage: 10 MG QAM SOI
     Route: 065
     Dates: start: 20190402, end: 20190403
  30. METFORMIN [Concomitant]
     Active Substance: METFORMIN HYDROCHLORIDE
     Indication: DIABETES MELLITUS
     Dosage: 1000 MG
     Route: 048
     Dates: start: 2016
  31. METOPROLOL. [Concomitant]
     Active Substance: METOPROLOL
     Dosage: 50 MG, UNK
     Route: 048
     Dates: start: 20190402, end: 20190402
  32. COZAAR [Concomitant]
     Active Substance: LOSARTAN POTASSIUM
     Indication: HYPERTENSION
     Dosage: 100 MG, UNK
     Route: 048
     Dates: start: 2012
  33. PIOGLITAZONE HYDROCHLORIDE. [Concomitant]
     Active Substance: PIOGLITAZONE HYDROCHLORIDE
     Indication: DIABETES MELLITUS
     Dosage: 15 MG, UNK
     Route: 048
     Dates: start: 2016
  34. INSULIN [Concomitant]
     Active Substance: INSULIN NOS
     Dosage: 60(LONG ACTING)
     Route: 058
     Dates: start: 20190409
  35. CLARITINE [Concomitant]
     Active Substance: LORATADINE
     Indication: PROPHYLAXIS
     Dosage: 10 MG, UNK
     Route: 048
     Dates: start: 20190323, end: 20190329

REACTIONS (20)
  - Frustration tolerance decreased [Not Recovered/Not Resolved]
  - Fatigue [Recovered/Resolved]
  - Headache [Recovered/Resolved]
  - Headache [Recovered/Resolved]
  - Axillary mass [Recovered/Resolved]
  - Anxiety [Not Recovered/Not Resolved]
  - Body temperature increased [Recovering/Resolving]
  - Headache [Recovered/Resolved]
  - Headache [Recovered/Resolved]
  - Fatigue [Unknown]
  - Dermal cyst [Recovered/Resolved]
  - Dehydration [Recovered/Resolved]
  - Neuropathy peripheral [Not Recovered/Not Resolved]
  - Non-cardiac chest pain [Recovered/Resolved]
  - Abdominal pain [Recovered/Resolved]
  - Fatigue [Recovered/Resolved]
  - Back pain [Recovered/Resolved]
  - Paraesthesia [Not Recovered/Not Resolved]
  - Pyrexia [Recovered/Resolved]
  - Blood potassium decreased [Recovered/Resolved]

NARRATIVE: CASE EVENT DATE: 20190129
